FAERS Safety Report 14455094 (Version 1)
Quarter: 2018Q1

REPORT INFORMATION
  Report Type: Report from Study
  Country: US (occurrence: US)
  Receive Date: 20180129
  Receipt Date: 20180129
  Transmission Date: 20180509
  Serious: Yes (Hospitalization)
  Sender: FDA-Public Use
  Company Number: US-ACTELION-A-US2017-157530

PATIENT
  Age: 60 Year
  Sex: Female
  Weight: 87.75 kg

DRUGS (1)
  1. OPSUMIT [Suspect]
     Active Substance: MACITENTAN
     Indication: PULMONARY HYPERTENSION
     Dosage: 10 MG, QD
     Route: 048

REACTIONS (12)
  - Chest discomfort [Unknown]
  - Nausea [Unknown]
  - Palpitations [Unknown]
  - Dyspnoea [Unknown]
  - Dizziness [Unknown]
  - Hernia [Unknown]
  - Pneumonia [Unknown]
  - Headache [Unknown]
  - Hypertension [Unknown]
  - Diarrhoea [Unknown]
  - Memory impairment [Unknown]
  - Hypoaesthesia oral [Unknown]
